FAERS Safety Report 8798994 (Version 1)
Quarter: 2012Q4

REPORT INFORMATION
  Report Type: Spontaneous
  Country: US (occurrence: None)
  Receive Date: 20120914
  Receipt Date: 20120914
  Transmission Date: 20130627
  Serious: Yes (Hospitalization)
  Sender: FDA-Public Use
  Company Number: 149509

PATIENT
  Age: 69 Year
  Sex: Male

DRUGS (24)
  1. METHOTREXATE [Suspect]
     Route: 037
  2. METHOTREXATE [Suspect]
     Route: 037
  3. METHOTREXATE [Suspect]
     Route: 037
  4. METHOTREXATE [Suspect]
     Route: 037
  5. METHOTREXATE [Suspect]
     Dosage: Intravenous (not otherwise specified)
     Route: 042
  6. METHOTREXATE [Suspect]
     Dosage: Intravenous (not otherwise specified)
     Route: 042
  7. METHOTREXATE [Suspect]
     Dosage: Intravenous (not otherwise specified)
     Route: 042
  8. METHOTREXATE [Suspect]
     Dosage: Intravenous (not otherwise specified)
     Route: 042
  9. CYTARABINE [Suspect]
     Route: 037
  10. CYTARABINE [Suspect]
     Route: 037
  11. CYTARABINE [Suspect]
     Route: 037
  12. CYTARABINE [Suspect]
     Route: 037
  13. BENDAMUSTINE [Suspect]
  14. BENDAMUSTINE [Suspect]
  15. BENDAMUSTINE [Suspect]
  16. BENDAMUSTINE [Suspect]
  17. RITUXIMAB [Suspect]
  18. RITUXIMAB [Suspect]
  19. RITUXIMAB [Suspect]
  20. RITUXIMAB [Suspect]
  21. THERAPEUTIC RADIOPHARMACEUTICALS [Suspect]
  22. THERAPEUTIC RADIOPHARMACEUTICALS [Suspect]
  23. CYCLOPHOSPHAMIDE [Concomitant]
  24. PRDNISOLONE [Concomitant]

REACTIONS (7)
  - Encephalopathy [None]
  - Mental status changes [None]
  - Depressed level of consciousness [None]
  - Disorientation [None]
  - Ataxia [None]
  - Nausea [None]
  - Vomiting [None]
